FAERS Safety Report 18762501 (Version 1)
Quarter: 2021Q1

REPORT INFORMATION
  Report Type: Spontaneous
  Country: US (occurrence: US)
  Receive Date: 20210119
  Receipt Date: 20210119
  Transmission Date: 20210419
  Serious: No
  Sender: FDA-Public Use
  Company Number: None

PATIENT
  Sex: Female

DRUGS (1)
  1. ERLOTINIB 100MG ZYDUS PHARMACEUTICALS (US [Suspect]
     Active Substance: ERLOTINIB
     Indication: LUNG DISORDER
     Route: 048
     Dates: start: 20200327

REACTIONS (2)
  - Product substitution issue [None]
  - Diarrhoea [None]
